FAERS Safety Report 19017669 (Version 2)
Quarter: 2021Q2

REPORT INFORMATION
  Report Type: Report from Study
  Country: US (occurrence: US)
  Receive Date: 20210317
  Receipt Date: 20210408
  Transmission Date: 20210717
  Serious: Yes (Death, Other)
  Sender: FDA-Public Use
  Company Number: US-PFIZER INC-2021252700

PATIENT
  Age: 72 Year

DRUGS (6)
  1. PENTOSTATIN. [Suspect]
     Active Substance: PENTOSTATIN
     Dosage: 0.1 MG/KG, DAILY,  DAY 3
  2. PENTOSTATIN. [Suspect]
     Active Substance: PENTOSTATIN
     Dosage: 0.05 MG/KG, DAILY, DAY 2
  3. PENTOSTATIN. [Suspect]
     Active Substance: PENTOSTATIN
     Dosage: 0.25 MG/KG, DAILY,  DAY 6?9
  4. PENTOSTATIN. [Suspect]
     Active Substance: PENTOSTATIN
     Dosage: 0.15 MG/KG, DAILY, DAY 4
  5. PENTOSTATIN. [Suspect]
     Active Substance: PENTOSTATIN
     Indication: CUTANEOUS T-CELL LYMPHOMA
     Dosage: 0.01 MG/KG, DAILY, DAY 1
  6. PENTOSTATIN. [Suspect]
     Active Substance: PENTOSTATIN
     Dosage: 0.2 MG/KG, DAILY, DAY 5

REACTIONS (8)
  - Nausea [Unknown]
  - Pulmonary oedema [Fatal]
  - Renal function test abnormal [Unknown]
  - Vomiting [Unknown]
  - Cardiac failure congestive [Unknown]
  - Hypotension [Unknown]
  - Liver function test abnormal [Unknown]
  - Anaemia [Unknown]
